FAERS Safety Report 26155751 (Version 1)
Quarter: 2025Q4

REPORT INFORMATION
  Report Type: Spontaneous
  Country: US (occurrence: US)
  Receive Date: 20251215
  Receipt Date: 20251215
  Transmission Date: 20260117
  Serious: Yes (Hospitalization, Other)
  Sender: ALKEM
  Company Number: None

PATIENT
  Age: 57 Year
  Sex: Female

DRUGS (2)
  1. TACROLIMUS [Suspect]
     Active Substance: TACROLIMUS
     Indication: Immunosuppressant drug therapy
     Dosage: 0.5 MILLIGRAM, QD
     Route: 065
  2. PREDNISONE [Suspect]
     Active Substance: PREDNISONE
     Indication: Immunosuppressant drug therapy
     Dosage: 5 MILLIGRAM, QD
     Route: 048

REACTIONS (6)
  - Eye infection toxoplasmal [Recovering/Resolving]
  - Cryptococcosis [Recovering/Resolving]
  - Meningitis cryptococcal [Recovering/Resolving]
  - Pneumonia cryptococcal [Recovering/Resolving]
  - Endophthalmitis [Recovering/Resolving]
  - Cytomegalovirus test positive [Unknown]
